FAERS Safety Report 4906651-X (Version None)
Quarter: 2006Q1

REPORT INFORMATION
  Report Type: 
  Country: None (occurrence: None)
  Receive Date: 20060206
  Receipt Date: 20060126
  Transmission Date: 20060701
  Serious: Yes (Hospitalization)
  Sender: FDA-Public Use
  Company Number: HQWYE528227JAN06

PATIENT
  Sex: Female

DRUGS (1)
  1. ADVIL [Suspect]
     Indication: TOOTHACHE
     Dosage: SEE IMAGE                                                                           SEE IMAGE

REACTIONS (3)
  - EYE PAIN [None]
  - HEADACHE [None]
  - VISUAL DISTURBANCE [None]
